FAERS Safety Report 10805205 (Version 1)
Quarter: 2015Q1

REPORT INFORMATION
  Report Type: Spontaneous
  Country: US (occurrence: US)
  Receive Date: 20150217
  Receipt Date: 20150217
  Transmission Date: 20150721
  Serious: No
  Sender: FDA-Public Use
  Company Number: US-ABBVIE-14K-163-1263001-00

PATIENT
  Age: 42 Year
  Sex: Female
  Weight: 78.09 kg

DRUGS (5)
  1. TYLENOL NO.3 [Concomitant]
     Indication: PAIN
  2. DEXILANT [Concomitant]
     Active Substance: DEXLANSOPRAZOLE
     Indication: ULCER
  3. HUMIRA [Suspect]
     Active Substance: ADALIMUMAB
     Indication: ANKYLOSING SPONDYLITIS
     Dates: start: 201311, end: 20140718
  4. HUMIRA [Suspect]
     Active Substance: ADALIMUMAB
     Dates: start: 20140718
  5. VITAMIN C [Concomitant]
     Active Substance: ASCORBIC ACID
     Indication: VITAMIN SUPPLEMENTATION

REACTIONS (6)
  - Syringe issue [Unknown]
  - Injection site pain [Not Recovered/Not Resolved]
  - Product packaging quantity issue [Unknown]
  - Back pain [Not Recovered/Not Resolved]
  - Drug effect decreased [Not Recovered/Not Resolved]
  - Arthralgia [Not Recovered/Not Resolved]

NARRATIVE: CASE EVENT DATE: 201311
